FAERS Safety Report 7020015-7 (Version None)
Quarter: 2010Q3

REPORT INFORMATION
  Report Type: 
  Country: None (occurrence: None)
  Receive Date: 20100929
  Receipt Date: 20090827
  Transmission Date: 20110219
  Serious: No
  Sender: FDA-Public Use
  Company Number: US-ASTRAZENECA-2009UW11892

PATIENT
  Age: 59 Year
  Sex: Female
  Weight: 80.7 kg

DRUGS (5)
  1. ARIMIDEX [Suspect]
     Route: 048
     Dates: start: 20090415, end: 20090101
  2. PREVACID [Concomitant]
     Indication: DYSPEPSIA
  3. CALTRATE [Concomitant]
     Indication: BONE DISORDER
  4. VITAMIN D [Concomitant]
     Indication: VITAMIN D DEFICIENCY
  5. VITAMIN B-12 [Concomitant]

REACTIONS (5)
  - GLOSSODYNIA [None]
  - MUSCULAR WEAKNESS [None]
  - ORAL PAIN [None]
  - PAIN IN JAW [None]
  - TREMOR [None]
